FAERS Safety Report 5068239-2 (Version None)
Quarter: 2006Q3

REPORT INFORMATION
  Report Type: 
  Country: None (occurrence: None)
  Receive Date: 20060802
  Receipt Date: 20050616
  Transmission Date: 20061208
  Serious: No
  Sender: FDA-Public Use
  Company Number: US-BRISTOL-MYERS SQUIBB COMPANY-13006531

PATIENT
  Age: 85 Year
  Sex: Female
  Weight: 50 kg

DRUGS (6)
  1. COUMADIN [Suspect]
     Indication: THROMBOSIS
  2. ASPIRIN [Concomitant]
  3. DARVOCET [Concomitant]
  4. LEVOXYL [Concomitant]
  5. LISINOPRIL [Concomitant]
  6. ZETIA [Concomitant]

REACTIONS (1)
  - ALOPECIA [None]
